FAERS Safety Report 14172886 (Version 1)
Quarter: 2017Q4

REPORT INFORMATION
  Report Type: Spontaneous
  Country: IN (occurrence: IN)
  Receive Date: 20171109
  Receipt Date: 20171109
  Transmission Date: 20180321
  Serious: No
  Sender: FDA-Public Use
  Company Number: IN-LUPIN PHARMACEUTICALS INC.-E2B_00006421

PATIENT
  Age: 29 Year
  Sex: Male

DRUGS (1)
  1. CEFAXONE [Suspect]
     Active Substance: CEFTRIAXONE
     Indication: VIRAL UPPER RESPIRATORY TRACT INFECTION
     Dosage: 1 G,QD,
     Route: 065
     Dates: start: 20161018, end: 20161018

REACTIONS (1)
  - Pruritus generalised [Not Recovered/Not Resolved]

NARRATIVE: CASE EVENT DATE: 20161018
